FAERS Safety Report 17180143 (Version 2)
Quarter: 2020Q2

REPORT INFORMATION
  Report Type: Spontaneous
  Country: IT (occurrence: IT)
  Receive Date: 20191220
  Receipt Date: 20200527
  Transmission Date: 20200713
  Serious: Yes (Other)
  Sender: FDA-Public Use
  Company Number: IT-SUN PHARMACEUTICAL INDUSTRIES LTD-2019RR-231315

PATIENT
  Age: 84 Year
  Sex: Male
  Weight: 69 kg

DRUGS (1)
  1. OXALIPLATIN. [Suspect]
     Active Substance: OXALIPLATIN
     Indication: ADENOCARCINOMA GASTRIC
     Dosage: CYCLICAL
     Route: 042
     Dates: start: 20191126, end: 20191126

REACTIONS (2)
  - Erythema [Recovering/Resolving]
  - Extravasation [Recovering/Resolving]

NARRATIVE: CASE EVENT DATE: 20191126
